FAERS Safety Report 14526444 (Version 1)
Quarter: 2018Q1

REPORT INFORMATION
  Report Type: Report from Study
  Country: IN (occurrence: IN)
  Receive Date: 20180213
  Receipt Date: 20180213
  Transmission Date: 20180509
  Serious: Yes (Hospitalization, Other)
  Sender: FDA-Public Use
  Company Number: PHHY2016IN155632

PATIENT
  Sex: Female

DRUGS (3)
  1. GLIVEC [Suspect]
     Active Substance: IMATINIB MESYLATE
     Indication: CHRONIC MYELOID LEUKAEMIA
     Dosage: 400 MG, UNK
     Route: 065
  2. GLIVEC [Suspect]
     Active Substance: IMATINIB MESYLATE
     Dosage: 300 MG, UNK
     Route: 065
  3. GLIVEC [Suspect]
     Active Substance: IMATINIB MESYLATE
     Dosage: 400 MG, QD
     Route: 065

REACTIONS (9)
  - Asthenia [Unknown]
  - Lung neoplasm malignant [Unknown]
  - Oedema [Unknown]
  - Second primary malignancy [Unknown]
  - Hepatitis B [Unknown]
  - Pleural effusion [Unknown]
  - Drug intolerance [Unknown]
  - Cholecystitis [Unknown]
  - Intestinal cyst [Unknown]
